FAERS Safety Report 10227319 (Version 1)
Quarter: 2014Q2

REPORT INFORMATION
  Report Type: Spontaneous
  Country: NL (occurrence: NL)
  Receive Date: 20140610
  Receipt Date: 20140610
  Transmission Date: 20141212
  Serious: Yes (Hospitalization)
  Sender: FDA-Public Use
  Company Number: NL-SUN PHARMACEUTICAL INDUSTRIES LTD-2014SUN01226

PATIENT
  Sex: 0

DRUGS (2)
  1. OXALIPLATIN [Suspect]
     Indication: RECTAL CANCER
     Route: 065
  2. CAPECITABINE [Concomitant]
     Indication: RECTAL CANCER
     Route: 065

REACTIONS (2)
  - Multi-organ failure [Unknown]
  - Venoocclusive liver disease [Unknown]
